FAERS Safety Report 15565500 (Version 1)
Quarter: 2018Q4

REPORT INFORMATION
  Report Type: Spontaneous
  Country: FR (occurrence: FR)
  Receive Date: 20181030
  Receipt Date: 20181030
  Transmission Date: 20190205
  Serious: Yes (Disabling)
  Sender: FDA-Public Use
  Company Number: PHHY2018FR141512

PATIENT
  Age: 93 Year
  Sex: Female
  Weight: 41 kg

DRUGS (1)
  1. EXJADE [Suspect]
     Active Substance: DEFERASIROX
     Indication: HAEMOCHROMATOSIS
     Dosage: 625 MG, QD
     Route: 048
     Dates: start: 2007

REACTIONS (2)
  - Visual acuity reduced [Not Recovered/Not Resolved]
  - Retinal toxicity [Not Recovered/Not Resolved]

NARRATIVE: CASE EVENT DATE: 20181002
